FAERS Safety Report 17764054 (Version 20)
Quarter: 2024Q2

REPORT INFORMATION
  Report Type: Spontaneous
  Country: CA (occurrence: CA)
  Receive Date: 20200511
  Receipt Date: 20240530
  Transmission Date: 20240716
  Serious: Yes (Disabling, Other)
  Sender: FDA-Public Use
  Company Number: CA-CELLTRION INC.-2020CA022150

PATIENT

DRUGS (24)
  1. INFLECTRA [Suspect]
     Active Substance: INFLIXIMAB-DYYB
     Indication: Colitis ulcerative
     Dosage: 5MG/KG WEEKS 0, 2, 6, THEN EVERY 8 WEEKS
     Route: 042
     Dates: start: 20200314
  2. INFLECTRA [Suspect]
     Active Substance: INFLIXIMAB-DYYB
     Dosage: 5MG/KG WEEKS 0, 2, 6, THEN EVERY 8 WEEKS
     Route: 042
     Dates: start: 20200331
  3. INFLECTRA [Suspect]
     Active Substance: INFLIXIMAB-DYYB
     Dosage: 500 MG WEEKS 0, 2, 6, THEN EVERY 8 WEEKS
     Route: 042
     Dates: start: 20200501
  4. INFLECTRA [Suspect]
     Active Substance: INFLIXIMAB-DYYB
     Dosage: 500 MG WEEKS 0, 2, 6, THEN EVERY 8 WEEKS
     Route: 042
     Dates: start: 20200501
  5. INFLECTRA [Suspect]
     Active Substance: INFLIXIMAB-DYYB
     Dosage: 500 MG WEEKS 0, 2, 6, THEN EVERY 8 WEEKS
     Route: 042
     Dates: start: 20200625
  6. INFLECTRA [Suspect]
     Active Substance: INFLIXIMAB-DYYB
     Dosage: 500 MG WEEKS 0, 2, 6, THEN EVERY 8 WEEKS
     Route: 042
     Dates: start: 20200821
  7. INFLECTRA [Suspect]
     Active Substance: INFLIXIMAB-DYYB
     Dosage: 500MG, AFTER 10 WEEKS AND 6 DAYS
     Route: 042
     Dates: start: 20201105
  8. INFLECTRA [Suspect]
     Active Substance: INFLIXIMAB-DYYB
     Dosage: 5 MG/KG WEEKS 0, 2, 6, THEN EVERY 8 WEEK
     Route: 042
     Dates: start: 20210223
  9. INFLECTRA [Suspect]
     Active Substance: INFLIXIMAB-DYYB
     Dosage: 500MG, AFTER 6 WEEKS AND 1 DAY
     Route: 042
     Dates: start: 20210407
  10. INFLECTRA [Suspect]
     Active Substance: INFLIXIMAB-DYYB
     Dosage: 5MG/KG WEEKS 0, 2, 6, THEN EVERY 8 WEEKS
     Route: 042
     Dates: start: 20210603
  11. INFLECTRA [Suspect]
     Active Substance: INFLIXIMAB-DYYB
     Dosage: 5MG/KG WEEKS 0, 2, 6, THEN EVERY 8 WEEKS
     Route: 042
     Dates: start: 20210814
  12. INFLECTRA [Suspect]
     Active Substance: INFLIXIMAB-DYYB
     Dosage: 500 MG, WEEK 0 REINDUCTION
     Route: 042
     Dates: start: 20230822
  13. INFLECTRA [Suspect]
     Active Substance: INFLIXIMAB-DYYB
     Dosage: RE-INDUCTION (DOSE UNAVAILABLE)
     Route: 042
     Dates: start: 20230907
  14. INFLECTRA [Suspect]
     Active Substance: INFLIXIMAB-DYYB
     Dosage: 500 MG, AFTER 4 WEEKS AND 1 DAY (WEEK 6)
     Route: 042
     Dates: start: 20231006
  15. INFLECTRA [Suspect]
     Active Substance: INFLIXIMAB-DYYB
     Dosage: 500 MG, AFTER 8 WEEKS
     Route: 042
     Dates: start: 20231204
  16. INFLECTRA [Suspect]
     Active Substance: INFLIXIMAB-DYYB
     Dosage: 500 MG, AFTER 8 WEEKS AND 1 DAY (PRESCRIBED EVERY 8 WEEKS)
     Route: 042
     Dates: start: 20240327
  17. INFLECTRA [Suspect]
     Active Substance: INFLIXIMAB-DYYB
     Dosage: 500 MG, AFTER 8 WEEKS
     Route: 042
     Dates: start: 20240522
  18. ASACOL [Concomitant]
     Active Substance: MESALAMINE
     Dosage: 800 MG, 3X/DAY
     Route: 048
  19. ENSURE [Concomitant]
     Active Substance: AMINO ACIDS\DEXTROSE\ELECTROLYTES NOS\SOYBEAN OIL\VITAMINS
     Dosage: 1 DF, DOSAGE INFO UNAVAILABLE
     Route: 065
  20. MELATONIN [Concomitant]
     Active Substance: MELATONIN
     Dosage: 9 MG, 1X/DAY
     Route: 065
  21. METHADONE [Concomitant]
     Active Substance: METHADONE HYDROCHLORIDE
     Dosage: 6 MG, 1X/DAY (DRUG ONGOING)
     Route: 065
  22. PANTOPRAZOLE SODIUM [Concomitant]
     Active Substance: PANTOPRAZOLE SODIUM
     Dosage: 9 MG, 1X/DAY
  23. PANTOPRAZOLE SODIUM [Concomitant]
     Active Substance: PANTOPRAZOLE SODIUM
     Dosage: 40 MG, 1X/DAY
     Route: 065
  24. REMERON [Concomitant]
     Active Substance: MIRTAZAPINE
     Dosage: 15 MG, 1X/DAY
     Route: 065

REACTIONS (15)
  - Weight decreased [Recovering/Resolving]
  - Heart rate decreased [Not Recovered/Not Resolved]
  - Brain injury [Unknown]
  - Upper limb fracture [Not Recovered/Not Resolved]
  - Seizure [Not Recovered/Not Resolved]
  - Drug ineffective [Unknown]
  - Psoriasis [Unknown]
  - Malaise [Recovered/Resolved]
  - Pyrexia [Unknown]
  - COVID-19 [Unknown]
  - Condition aggravated [Not Recovered/Not Resolved]
  - Blood pressure increased [Unknown]
  - Off label use [Unknown]
  - Inappropriate schedule of product administration [Unknown]
  - Incorrect dose administered [Unknown]

NARRATIVE: CASE EVENT DATE: 20200501
